FAERS Safety Report 7556840-3 (Version None)
Quarter: 2011Q2

REPORT INFORMATION
  Report Type: 
  Country: None (occurrence: None)
  Receive Date: 20110609
  Receipt Date: 20110606
  Transmission Date: 20111010
  Serious: Yes (Hospitalization, Other)
  Sender: FDA-Public Use
  Company Number: 2009SP029107

PATIENT
  Age: 24 Year
  Sex: Female
  Weight: 55.7924 kg

DRUGS (3)
  1. NUVARING [Suspect]
     Indication: CONTRACEPTION
     Dates: start: 20060701, end: 20071001
  2. EFFEXOR [Concomitant]
  3. AMITRIPTYLINE HCL [Concomitant]

REACTIONS (38)
  - PULMONARY EMBOLISM [None]
  - GASTROOESOPHAGEAL REFLUX DISEASE [None]
  - SINUS TACHYCARDIA [None]
  - PNEUMOTHORAX [None]
  - DIZZINESS [None]
  - THROMBOSIS [None]
  - CHEST PAIN [None]
  - CHLAMYDIAL INFECTION [None]
  - BLOOD URINE PRESENT [None]
  - DYSPAREUNIA [None]
  - URINE ODOUR ABNORMAL [None]
  - CHANGE OF BOWEL HABIT [None]
  - MENINGITIS VIRAL [None]
  - MENSTRUATION IRREGULAR [None]
  - DECREASED APPETITE [None]
  - RASH [None]
  - PALPITATIONS [None]
  - SYNCOPE [None]
  - DRUG EXPOSURE DURING PREGNANCY [None]
  - MIGRAINE [None]
  - INJURY [None]
  - BRONCHIAL HYPERREACTIVITY [None]
  - GINGIVAL BLEEDING [None]
  - INCREASED TENDENCY TO BRUISE [None]
  - GASTROINTESTINAL HAEMORRHAGE [None]
  - TOBACCO ABUSE [None]
  - DUODENITIS [None]
  - PREGNANCY [None]
  - MEMORY IMPAIRMENT [None]
  - PANIC ATTACK [None]
  - MENINGITIS ASEPTIC [None]
  - BRONCHITIS [None]
  - DEPRESSION [None]
  - ANAEMIA [None]
  - ABORTION SPONTANEOUS [None]
  - MENORRHAGIA [None]
  - HAEMATURIA [None]
  - HAEMORRHOIDS [None]
